FAERS Safety Report 20076977 (Version 2)
Quarter: 2021Q4

REPORT INFORMATION
  Report Type: Report from Study
  Country: UA (occurrence: UA)
  Receive Date: 20211116
  Receipt Date: 20211216
  Transmission Date: 20220303
  Serious: Yes (Hospitalization, Disabling)
  Sender: FDA-Public Use
  Company Number: UA-CELGENE-UKR-20211103214

PATIENT
  Sex: Female

DRUGS (15)
  1. OZANIMOD [Suspect]
     Active Substance: OZANIMOD
     Indication: Relapsing multiple sclerosis
     Route: 048
     Dates: start: 20161114
  2. ENALAPRIL [Concomitant]
     Active Substance: ENALAPRIL
     Indication: Hypertension
     Dosage: 5 MILLIGRAM
     Route: 048
     Dates: start: 20140325
  3. SOLU-MEDROL [Concomitant]
     Active Substance: METHYLPREDNISOLONE SODIUM SUCCINATE
     Indication: Multiple sclerosis relapse
     Dosage: 1000 MILLIGRAM
     Route: 041
  4. SOLU-MEDROL [Concomitant]
     Active Substance: METHYLPREDNISOLONE SODIUM SUCCINATE
     Dosage: 1000 MILLIGRAM
     Route: 041
  5. DIALIPON [Concomitant]
     Indication: Multiple sclerosis relapse
     Dosage: 600 MILLIGRAM
     Route: 041
  6. Vitaxon [Concomitant]
     Indication: Multiple sclerosis relapse
     Dosage: 2 MILLILITRE
     Route: 030
  7. DRIPTAN [Concomitant]
     Indication: Multiple sclerosis relapse
     Dosage: 5 MILLIGRAM
     Route: 048
  8. OMEPRAZOLE [Concomitant]
     Active Substance: OMEPRAZOLE
     Indication: Prophylaxis
     Dosage: 20 MILLIGRAM
     Route: 048
  9. IPIDACRINE [Concomitant]
     Active Substance: IPIDACRINE
     Indication: Multiple sclerosis relapse
     Dosage: 15 MILLIGRAM
     Route: 030
  10. IPIDACRINE [Concomitant]
     Active Substance: IPIDACRINE
     Indication: Back pain
     Dosage: 20 MILLIGRAM
     Route: 048
  11. Neurorubin [Concomitant]
     Indication: Multiple sclerosis relapse
     Dosage: 3 MILLILITER
     Route: 030
  12. CHOLINE ALFOSCERATE [Concomitant]
     Active Substance: CHOLINE ALFOSCERATE
     Indication: Multiple sclerosis relapse
     Dosage: 4 MILLILITER
     Route: 030
  13. MELOXICAM [Concomitant]
     Active Substance: MELOXICAM
     Indication: Back pain
     Dosage: 7.5 MILLIGRAM
     Route: 048
  14. PREGABALIN [Concomitant]
     Active Substance: PREGABALIN
     Indication: Back pain
     Dosage: 7.5 MILLIGRAM
     Route: 048
  15. PANTOPRAZOLE [Concomitant]
     Active Substance: PANTOPRAZOLE
     Indication: Prophylaxis
     Dosage: 40 MILLIGRAM
     Route: 048

REACTIONS (1)
  - COVID-19 [Recovered/Resolved]

NARRATIVE: CASE EVENT DATE: 20211001
